FAERS Safety Report 11249760 (Version 1)
Quarter: 2015Q3

REPORT INFORMATION
  Report Type: Spontaneous
  Country: US (occurrence: US)
  Receive Date: 20150708
  Receipt Date: 20150708
  Transmission Date: 20151125
  Serious: Yes (Other)
  Sender: FDA-Public Use
  Company Number: US-ELI_LILLY_AND_COMPANY-US201003001471

PATIENT
  Age: 61 Year
  Sex: Female
  Weight: 99.32 kg

DRUGS (16)
  1. GEMZAR [Suspect]
     Active Substance: GEMCITABINE HYDROCHLORIDE
     Indication: OVARIAN CANCER
     Dosage: 1600 MG, UNK
     Route: 042
     Dates: start: 20100216
  2. SENOKOT [Concomitant]
     Active Substance: SENNOSIDES
  3. IBUPROFEN. [Concomitant]
     Active Substance: IBUPROFEN
  4. NEUPOGEN [Concomitant]
     Active Substance: FILGRASTIM
     Dates: start: 20100409
  5. COMPAZINE [Concomitant]
     Active Substance: PROCHLORPERAZINE MALEATE
  6. GEMZAR [Suspect]
     Active Substance: GEMCITABINE HYDROCHLORIDE
     Dosage: 1100 MG, UNK
     Route: 042
     Dates: start: 20100412
  7. PEPCID [Concomitant]
     Active Substance: FAMOTIDINE
  8. MVI [Concomitant]
     Active Substance: VITAMINS
  9. ARANESP [Concomitant]
     Active Substance: DARBEPOETIN ALFA
     Dates: start: 20100322
  10. DILAUDID [Concomitant]
     Active Substance: HYDROMORPHONE HYDROCHLORIDE
  11. GEMZAR [Suspect]
     Active Substance: GEMCITABINE HYDROCHLORIDE
     Dosage: 1000 MG, UNK
     Route: 042
     Dates: start: 20100315
  12. ALEXIA [Concomitant]
  13. DEXAMETHASONE. [Concomitant]
     Active Substance: DEXAMETHASONE
  14. PRILOSEC [Concomitant]
     Active Substance: OMEPRAZOLE MAGNESIUM
  15. ZOCOR [Concomitant]
     Active Substance: SIMVASTATIN
  16. BENADRYL [Concomitant]
     Active Substance: DIPHENHYDRAMINE HYDROCHLORIDE

REACTIONS (5)
  - Thrombocytopenia [Unknown]
  - Tremor [Unknown]
  - Pyrexia [Unknown]
  - Chills [Unknown]
  - Haemoglobin abnormal [Unknown]

NARRATIVE: CASE EVENT DATE: 20100301
